FAERS Safety Report 6720454-5 (Version None)
Quarter: 2010Q2

REPORT INFORMATION
  Report Type: 
  Country: None (occurrence: None)
  Receive Date: 20100511
  Receipt Date: 20100503
  Transmission Date: 20101027
  Serious: Yes (Other)
  Sender: FDA-Public Use
  Company Number: TR-ABBOTT-10P-161-0639851-00

PATIENT
  Age: 75 Year
  Sex: Male

DRUGS (4)
  1. KLACID MR [Suspect]
     Indication: LOWER RESPIRATORY TRACT INFECTION
     Route: 048
  2. KLACID MR [Interacting]
     Indication: DENTAL OPERATION
  3. WARFARIN [Interacting]
     Indication: DRUG USE FOR UNKNOWN INDICATION
     Route: 048
  4. WARFARIN [Interacting]

REACTIONS (2)
  - DRUG INTERACTION [None]
  - HAEMATOMA [None]
